FAERS Safety Report 12713191 (Version 3)
Quarter: 2016Q4

REPORT INFORMATION
  Report Type: Report from Study
  Country: None (occurrence: US)
  Receive Date: 20160902
  Receipt Date: 20161208
  Transmission Date: 20170207
  Serious: Yes (Other)
  Sender: FDA-Public Use
  Company Number: US-ABBVIE-16K-163-1714531-00

PATIENT
  Age: 13 Year
  Sex: Female

DRUGS (4)
  1. HUMIRA [Suspect]
     Active Substance: ADALIMUMAB
     Indication: CROHN^S DISEASE
     Route: 058
     Dates: start: 20150202, end: 2016
  2. 6 MERCAPTOPURINE [Concomitant]
     Active Substance: MERCAPTOPURINE
     Indication: CROHN^S DISEASE
  3. HUMIRA [Suspect]
     Active Substance: ADALIMUMAB
     Route: 058
     Dates: start: 201609
  4. FERROUS SULFATE. [Concomitant]
     Active Substance: FERROUS SULFATE
     Indication: CROHN^S DISEASE

REACTIONS (7)
  - Inflammatory bowel disease [Recovered/Resolved]
  - Abdominal pain [Unknown]
  - Intestinal ulcer [Recovered/Resolved]
  - Flatulence [Unknown]
  - Gastrointestinal necrosis [Recovered/Resolved]
  - Abnormal faeces [Unknown]
  - Pseudopolyposis [Recovered/Resolved]

NARRATIVE: CASE EVENT DATE: 2016
